FAERS Safety Report 8962712 (Version 1)
Quarter: 2012Q4

REPORT INFORMATION
  Report Type: Report from Study
  Country: GB (occurrence: ZA)
  Receive Date: 20121213
  Receipt Date: 20121213
  Transmission Date: 20130627
  Serious: Yes (Death, Hospitalization)
  Sender: FDA-Public Use
  Company Number: ZA-AMGEN-ZAFCT2007000161

PATIENT
  Age: 77 Year
  Sex: Male
  Weight: 61 kg

DRUGS (3)
  1. FILGRASTIM [Suspect]
     Indication: MYELODYSPLASTIC SYNDROME
     Dosage: 300 mg, 3 times/wk
     Route: 058
     Dates: start: 20051005, end: 20060315
  2. EPOETIN BETA [Concomitant]
     Indication: MYELODYSPLASTIC SYNDROME
     Dosage: 30000 IU, 2 times/wk
     Route: 058
     Dates: start: 20051005, end: 20060315
  3. THALIDOMIDE [Concomitant]
     Indication: MYELODYSPLASTIC SYNDROME
     Dosage: 200 mg, qd
     Route: 048
     Dates: start: 20051005, end: 20060830

REACTIONS (2)
  - Pulmonary oedema [Not Recovered/Not Resolved]
  - Death [Fatal]
